FAERS Safety Report 21633812 (Version 2)
Quarter: 2023Q1

REPORT INFORMATION
  Report Type: Spontaneous
  Country: NL (occurrence: NL)
  Receive Date: 20221123
  Receipt Date: 20230109
  Transmission Date: 20230417
  Serious: Yes (Other)
  Sender: FDA-Public Use
  Company Number: NL-ViiV Healthcare Limited-NL2022GSK167718

PATIENT

DRUGS (18)
  1. LAMIVUDINE [Suspect]
     Active Substance: LAMIVUDINE
     Indication: HIV infection CDC category B
     Dosage: UNK
     Dates: start: 199608, end: 199812
  2. LAMIVUDINE [Suspect]
     Active Substance: LAMIVUDINE
     Dosage: UNK
     Dates: start: 200308, end: 200312
  3. LAMIVUDINE [Suspect]
     Active Substance: LAMIVUDINE
     Dosage: UNK
     Dates: start: 200405, end: 200503
  4. LAMIVUDINE [Suspect]
     Active Substance: LAMIVUDINE
     Dosage: UNK
     Dates: start: 200606, end: 200608
  5. LAMIVUDINE [Suspect]
     Active Substance: LAMIVUDINE
     Dosage: UNK
     Dates: start: 200706, end: 200911
  6. INDINAVIR [Suspect]
     Active Substance: INDINAVIR
     Indication: HIV infection CDC category B
     Dosage: UNK
     Dates: start: 199608, end: 199812
  7. STAVUDINE [Suspect]
     Active Substance: STAVUDINE
     Indication: HIV infection CDC category B
     Dosage: UNK
     Dates: start: 199608, end: 199812
  8. LOPINAVIR\RITONAVIR [Suspect]
     Active Substance: LOPINAVIR\RITONAVIR
     Indication: HIV infection CDC category B
     Dosage: UNK
     Dates: start: 2002
  9. LOPINAVIR\RITONAVIR [Suspect]
     Active Substance: LOPINAVIR\RITONAVIR
     Dosage: UNK
     Dates: start: 200308, end: 200312
  10. LOPINAVIR\RITONAVIR [Suspect]
     Active Substance: LOPINAVIR\RITONAVIR
     Dosage: UNK
     Dates: start: 200405, end: 200503
  11. LOPINAVIR\RITONAVIR [Suspect]
     Active Substance: LOPINAVIR\RITONAVIR
     Dosage: UNK
     Dates: start: 200606, end: 200608
  12. LOPINAVIR\RITONAVIR [Suspect]
     Active Substance: LOPINAVIR\RITONAVIR
     Dosage: UNK
     Dates: start: 200706, end: 200911
  13. LOPINAVIR\RITONAVIR [Suspect]
     Active Substance: LOPINAVIR\RITONAVIR
     Dosage: UNK
  14. DIDANOSINE [Suspect]
     Active Substance: DIDANOSINE
     Indication: HIV infection CDC category B
     Dosage: UNK
     Dates: start: 200308, end: 200312
  15. DIDANOSINE [Suspect]
     Active Substance: DIDANOSINE
     Dosage: UNK
     Dates: start: 200405, end: 200503
  16. DIDANOSINE [Suspect]
     Active Substance: DIDANOSINE
     Dosage: UNK
     Dates: start: 200606, end: 200608
  17. DIDANOSINE [Suspect]
     Active Substance: DIDANOSINE
     Dosage: UNK
     Dates: start: 200706, end: 200911
  18. NEVIRAPINE [Suspect]
     Active Substance: NEVIRAPINE
     Indication: HIV infection CDC category B
     Dosage: UNK
     Dates: start: 2002

REACTIONS (3)
  - Pathogen resistance [Unknown]
  - Viral mutation identified [Unknown]
  - Treatment noncompliance [Unknown]
